FAERS Safety Report 9871013 (Version 2)
Quarter: 2014Q3

REPORT INFORMATION
  Report Type: Report from Study
  Country: JP (occurrence: JP)
  Receive Date: 20140205
  Receipt Date: 20140702
  Transmission Date: 20150326
  Serious: Yes (Death, Life-Threatening, Hospitalization, Other)
  Sender: FDA-Public Use
  Company Number: JP-BAYER-2014-014485

PATIENT
  Age: 51 Year
  Sex: Male
  Weight: 79 kg

DRUGS (5)
  1. STIVARGA [Suspect]
     Active Substance: REGORAFENIB
     Indication: RECTAL CANCER
     Dosage: 120 MG/DAY ON FOR 2 DAYS AND OFF FOR 1 DAY
     Route: 048
     Dates: start: 20140311, end: 20140324
  2. STIVARGA [Suspect]
     Active Substance: REGORAFENIB
     Indication: RECTAL CANCER
     Dosage: 160 MG, QD (6 DAYS ON)
     Route: 048
     Dates: start: 20131125, end: 20131201
  3. STIVARGA [Suspect]
     Active Substance: REGORAFENIB
     Indication: RECTAL CANCER
     Dosage: 120 MG, QD (3 DAYS ON)
     Route: 048
     Dates: start: 20131209, end: 20131211
  4. STIVARGA [Suspect]
     Active Substance: REGORAFENIB
     Indication: RECTAL CANCER
     Dosage: 120 MG, QD
     Route: 048
     Dates: start: 20140125, end: 20140309
  5. HIRUDOID [Concomitant]
     Active Substance: GLYCOSAMINOGLYCANS
     Indication: DRUG TOXICITY PROPHYLAXIS
     Dosage: UNK
     Route: 061
     Dates: start: 20130821, end: 20140310

REACTIONS (6)
  - Urinary tract infection [Recovering/Resolving]
  - Colorectal cancer [Fatal]
  - Urinary bladder haemorrhage [Recovered/Resolved]
  - Lymphoedema [Not Recovered/Not Resolved]
  - Haemorrhagic anaemia [Recovered/Resolved]
  - Palmar-plantar erythrodysaesthesia syndrome [Recovering/Resolving]

NARRATIVE: CASE EVENT DATE: 20131130
